FAERS Safety Report 14273448 (Version 1)
Quarter: 2017Q4

REPORT INFORMATION
  Report Type: Spontaneous
  Country: JP (occurrence: JP)
  Receive Date: 20171212
  Receipt Date: 20171212
  Transmission Date: 20180321
  Serious: Yes (Other)
  Sender: FDA-Public Use
  Company Number: PHHY2017JP180634

PATIENT

DRUGS (4)
  1. TEGAFUR [Suspect]
     Active Substance: TEGAFUR
     Indication: NON-SMALL CELL LUNG CANCER
     Dosage: UNK UNK, BID
     Route: 048
  2. CARBOPLATIN. [Suspect]
     Active Substance: CARBOPLATIN
     Indication: NON-SMALL CELL LUNG CANCER
     Dosage: UNK UNK, (ON DAY 1)
     Route: 041
  3. OTERACIL POTASSIUM [Suspect]
     Active Substance: OTERACIL POTASSIUM
     Indication: NON-SMALL CELL LUNG CANCER
     Dosage: UNK, BID
     Route: 048
  4. GIMERACIL [Suspect]
     Active Substance: GIMERACIL
     Indication: NON-SMALL CELL LUNG CANCER
     Dosage: UNK, BID
     Route: 048

REACTIONS (1)
  - Erythema multiforme [Recovered/Resolved]
